FAERS Safety Report 25829368 (Version 2)
Quarter: 2025Q4

REPORT INFORMATION
  Report Type: Spontaneous
  Country: US (occurrence: US)
  Receive Date: 20250922
  Receipt Date: 20251114
  Transmission Date: 20260118
  Serious: Yes (Other)
  Sender: ELI LILLY AND COMPANY
  Company Number: US-ELI_LILLY_AND_COMPANY-US202509012374

PATIENT
  Age: 71 Year
  Sex: Female
  Weight: 63.9 kg

DRUGS (3)
  1. KISUNLA [Suspect]
     Active Substance: DONANEMAB-AZBT
     Indication: Dementia Alzheimer^s type
     Dosage: 350 MG, OTHER (EVERY 28 DAYS) (1ST)
     Route: 042
     Dates: start: 20250607
  2. KISUNLA [Suspect]
     Active Substance: DONANEMAB-AZBT
     Dosage: 700 MG, OTHER (EVERY 28 DAYS) (2ND)
     Route: 042
     Dates: start: 20250705
  3. KISUNLA [Suspect]
     Active Substance: DONANEMAB-AZBT
     Dosage: 1050 MG, OTHER (EVERY 28 DAYS) (3RD)
     Route: 042
     Dates: start: 20250806, end: 20250910

REACTIONS (1)
  - Amyloid related imaging abnormality-oedema/effusion [Recovering/Resolving]
